FAERS Safety Report 15622291 (Version 3)
Quarter: 2018Q4

REPORT INFORMATION
  Report Type: Spontaneous
  Country: HU (occurrence: HU)
  Receive Date: 20181115
  Receipt Date: 20181126
  Transmission Date: 20190205
  Serious: Yes (Hospitalization)
  Sender: FDA-Public Use
  Company Number: HU-PFIZER INC-2018467040

PATIENT
  Age: 70 Year
  Sex: Female

DRUGS (11)
  1. FUROSEMID [Concomitant]
     Active Substance: FUROSEMIDE
     Dosage: UNK
  2. POTASSIUM [Concomitant]
     Active Substance: POTASSIUM
     Dosage: UNK
  3. NEO FERRO FOLGAMMA [Concomitant]
     Dosage: UNK
  4. NEORECORMON [Concomitant]
     Active Substance: ERYTHROPOIETIN
     Dosage: UNK
  5. EMOZUL [Concomitant]
     Dosage: UNK
  6. CONCOR [Concomitant]
     Active Substance: BISOPROLOL FUMARATE
     Dosage: 5 MG, 1X/DAY (DAILY 1X1 TABLET)
  7. XELJANZ [Suspect]
     Active Substance: TOFACITINIB CITRATE
     Indication: RHEUMATOID ARTHRITIS
     Dosage: 5 MG, 2X/DAY
     Route: 048
     Dates: start: 20180725
  8. IBANDRONIC ACID. [Concomitant]
     Active Substance: IBANDRONIC ACID
     Dosage: 150 MG, MONTHLY
  9. KARBICOMBI [Concomitant]
     Dosage: 1 DF, 1X/DAY (DAILY 1X1 TABLET)
  10. CITROKALCIUM [Concomitant]
     Dosage: 400 MG, 2X/DAY (DAILY 2X2 TABLET)
  11. VITAMIN D3 [Concomitant]
     Active Substance: CHOLECALCIFEROL
     Dosage: 1 DF, 1X/DAY (DAILY 1X1 CAPSULE)

REACTIONS (4)
  - Peripheral swelling [Recovered/Resolved]
  - Dyspnoea [Recovered/Resolved]
  - Atrial fibrillation [Not Recovered/Not Resolved]
  - Malaise [Recovered/Resolved]

NARRATIVE: CASE EVENT DATE: 201810
